FAERS Safety Report 23971060 (Version 2)
Quarter: 2025Q1

REPORT INFORMATION
  Report Type: Spontaneous
  Country: TR (occurrence: TR)
  Receive Date: 20240613
  Receipt Date: 20250219
  Transmission Date: 20250409
  Serious: No
  Sender: RANBAXY
  Company Number: TR-SUN PHARMACEUTICAL INDUSTRIES LTD-2024R1-450703

PATIENT
  Age: 14 Year
  Sex: Male

DRUGS (1)
  1. FLUOXETINE [Suspect]
     Active Substance: FLUOXETINE HYDROCHLORIDE
     Indication: Generalised anxiety disorder
     Dosage: 20 MILLIGRAM, DAILY
     Route: 065

REACTIONS (1)
  - Petechiae [Recovering/Resolving]
